FAERS Safety Report 6818700-2 (Version None)
Quarter: 2010Q2

REPORT INFORMATION
  Report Type: 
  Country: None (occurrence: None)
  Receive Date: 20100630
  Receipt Date: 20100623
  Transmission Date: 20101027
  Serious: Yes (Death)
  Sender: FDA-Public Use
  Company Number: JHP201000189

PATIENT
  Age: 35 Year
  Sex: Female
  Weight: 42 kg

DRUGS (7)
  1. PITRESSIN [Suspect]
     Indication: VASOCONSTRICTION
     Dosage: 6 U/HR, INTRAVENOUS
     Route: 042
  2. EPINEPHRINE [Suspect]
     Indication: MUSCLE DISORDER
     Dosage: 0.05 UG/KG, MIN, INTRAVENOUS
     Route: 042
  3. DOPAMINE HCL [Suspect]
     Indication: MUSCLE DISORDER
     Dosage: 10 UG/KG, MIN, INTRAVENOUS
     Route: 042
  4. NOREPINEPHRINE (NOREPINEPHRINE BITARTRATE) [Suspect]
     Indication: MUSCLE DISORDER
     Dosage: 0.05 UG/KG, MIN, INTRAVENOUS
     Route: 042
  5. DOBUTAMINE HCL [Suspect]
     Indication: MUSCLE DISORDER
     Dosage: 5 UG/KG, MIN, INTRAVENOUS
     Route: 042
  6. GENERAL ANESTHESIA [Concomitant]
  7. ROCURONIUM BROMIDE [Concomitant]

REACTIONS (14)
  - ACIDOSIS [None]
  - AIRWAY PEAK PRESSURE INCREASED [None]
  - ANURIA [None]
  - CARDIAC ARREST [None]
  - LOSS OF CONSCIOUSNESS [None]
  - LOW CARDIAC OUTPUT SYNDROME [None]
  - MEAN ARTERIAL PRESSURE DECREASED [None]
  - MUSCLE RIGIDITY [None]
  - NO THERAPEUTIC RESPONSE [None]
  - OXYGEN SATURATION DECREASED [None]
  - PULSE ABSENT [None]
  - TREATMENT FAILURE [None]
  - TRISMUS [None]
  - VASOCONSTRICTION [None]
